FAERS Safety Report 25969248 (Version 1)
Quarter: 2025Q4

REPORT INFORMATION
  Report Type: Spontaneous
  Country: JP (occurrence: JP)
  Receive Date: 20251028
  Receipt Date: 20251028
  Transmission Date: 20260118
  Serious: Yes (Hospitalization, Other)
  Sender: ELI LILLY AND COMPANY
  Company Number: JP-Merck Healthcare KGaA-2025034568

PATIENT
  Age: 75 Year
  Sex: Female

DRUGS (4)
  1. ERBITUX [Suspect]
     Active Substance: CETUXIMAB
     Indication: Rectal cancer metastatic
     Dosage: 600 MG
     Route: 041
  2. GIMERACIL\OTERACIL\TEGAFUR [Suspect]
     Active Substance: GIMERACIL\OTERACIL POTASSIUM\TEGAFUR
     Indication: Rectal cancer metastatic
     Dosage: 100 MG, DAILY
     Route: 042
  3. IRINOTECAN [Suspect]
     Active Substance: IRINOTECAN
     Indication: Rectal cancer metastatic
     Dosage: 140 MG, DAILY
     Route: 042
  4. CEFEPIME [Suspect]
     Active Substance: CEFEPIME HYDROCHLORIDE
     Indication: Liver abscess
     Dosage: 3 G, DAILY
     Route: 065

REACTIONS (3)
  - Toxic encephalopathy [Recovering/Resolving]
  - Major depression [Not Recovered/Not Resolved]
  - Liver abscess [Unknown]
